FAERS Safety Report 8919638 (Version 3)
Quarter: 2014Q2

REPORT INFORMATION
  Report Type: Spontaneous
  Country: US (occurrence: US)
  Receive Date: 20121121
  Receipt Date: 20140428
  Transmission Date: 20141212
  Serious: Yes (Hospitalization, Other)
  Sender: FDA-Public Use
  Company Number: US-BAYER-2012-120797

PATIENT
  Age: 48 Year
  Sex: Female
  Weight: 63.49 kg

DRUGS (3)
  1. YAZ [Suspect]
     Dosage: UNK
     Dates: start: 20030101, end: 2006
  2. NAPROSYN [Concomitant]
     Indication: INTERVERTEBRAL DISC PROTRUSION
     Dosage: 250 MG, UNK
     Route: 048
  3. MULTIVIT [Concomitant]
     Route: 048

REACTIONS (10)
  - Cholecystectomy [None]
  - Biliary dyskinesia [None]
  - Cholecystitis chronic [None]
  - Pain [None]
  - Injury [None]
  - General physical health deterioration [None]
  - Anxiety [None]
  - Anhedonia [None]
  - Emotional distress [None]
  - Pain [None]
